FAERS Safety Report 5096895-1 (Version None)
Quarter: 2006Q3

REPORT INFORMATION
  Report Type: 
  Country: None (occurrence: None)
  Receive Date: 20060901
  Receipt Date: 20060901
  Transmission Date: 20061208
  Serious: Yes (Life-Threatening, Hospitalization, Disabling)
  Sender: FDA-Public Use
  Company Number: None

PATIENT
  Age: 45 Year
  Sex: Male
  Weight: 79.8331 kg

DRUGS (1)
  1. FENTANYL [Suspect]
     Indication: PROCEDURAL PAIN
     Dosage: SEE IMAGE
     Route: 040
     Dates: start: 20060829, end: 20060831

REACTIONS (13)
  - BRONCHOSPASM [None]
  - DIZZINESS [None]
  - DRY MOUTH [None]
  - HYPERHIDROSIS [None]
  - INCREASED UPPER AIRWAY SECRETION [None]
  - NAUSEA [None]
  - PRODUCTIVE COUGH [None]
  - PRURITUS [None]
  - RESPIRATORY DEPRESSION [None]
  - SCROTAL SWELLING [None]
  - SOMNOLENCE [None]
  - VENTRICULAR EXTRASYSTOLES [None]
  - VOMITING [None]
